FAERS Safety Report 9906717 (Version 1)
Quarter: 2014Q1

REPORT INFORMATION
  Report Type: Spontaneous
  Country: US (occurrence: US)
  Receive Date: 20140218
  Receipt Date: 20140218
  Transmission Date: 20141002
  Serious: Yes (Other)
  Sender: FDA-Public Use
  Company Number: US-B.I. PHARMACEUTICALS,INC./RIDGEFIELD-2014-BI-06830BP

PATIENT
  Sex: Male

DRUGS (8)
  1. PRADAXA [Suspect]
     Indication: PRODUCT USED FOR UNKNOWN INDICATION
     Dosage: 300 MG
     Route: 048
  2. AMLODIPINE [Concomitant]
     Route: 048
  3. CARVEDILOL [Concomitant]
     Route: 048
  4. FUROSIMIDE [Concomitant]
     Route: 048
  5. PRILOSEC [Concomitant]
     Route: 048
  6. TERAZOSIN [Concomitant]
     Route: 048
  7. HCTZ [Concomitant]
     Route: 048
  8. DIOVAN [Concomitant]
     Route: 048

REACTIONS (1)
  - Malignant melanoma [Not Recovered/Not Resolved]
